FAERS Safety Report 10064592 (Version 1)
Quarter: 2014Q2

REPORT INFORMATION
  Report Type: Spontaneous
  Country: JP (occurrence: None)
  Receive Date: 20140404
  Receipt Date: 20140404
  Transmission Date: 20141212
  Serious: Yes (Other)
  Sender: FDA-Public Use
  Company Number: AE-SPE-2014-007

PATIENT
  Age: 1 Year
  Sex: Male

DRUGS (2)
  1. MEIACT MS FINE GRANULES (CEFDITOREN PIVOXIL) [Suspect]
     Route: 048
  2. PRESENT (UNKNOWN) [Concomitant]

REACTIONS (1)
  - Rhabdomyolysis [None]
